FAERS Safety Report 21420426 (Version 2)
Quarter: 2023Q1

REPORT INFORMATION
  Report Type: Report from Study
  Country: US (occurrence: US)
  Receive Date: 20221007
  Receipt Date: 20230201
  Transmission Date: 20230418
  Serious: Yes (Hospitalization, Other)
  Sender: FDA-Public Use
  Company Number: US-GILEAD-2022-0600440

PATIENT
  Age: 9 Year
  Sex: Female

DRUGS (1)
  1. AZTREONAM LYSINE [Suspect]
     Active Substance: AZTREONAM LYSINE
     Indication: Cystic fibrosis
     Dosage: 75 MG, TID FOR 1 MONTH ON AND 1 MONTH OFF
     Route: 055

REACTIONS (4)
  - Cystic fibrosis respiratory infection suppression [Unknown]
  - Infection [Unknown]
  - Nasopharyngitis [Unknown]
  - Cough [Unknown]
